FAERS Safety Report 10174619 (Version 1)
Quarter: 2014Q2

REPORT INFORMATION
  Report Type: Spontaneous
  Country: US (occurrence: US)
  Receive Date: 20140515
  Receipt Date: 20140515
  Transmission Date: 20141212
  Serious: Yes (Hospitalization, Disabling)
  Sender: FDA-Public Use
  Company Number: US-VIIV HEALTHCARE LIMITED-A1072623A

PATIENT
  Sex: Male

DRUGS (2)
  1. SELZENTRY [Suspect]
     Indication: HIV INFECTION
     Dosage: 300MG TWICE PER DAY
     Route: 048
  2. UNKNOWN [Concomitant]

REACTIONS (2)
  - Fall [Unknown]
  - Jaw fracture [Unknown]
